FAERS Safety Report 13052395 (Version 3)
Quarter: 2017Q1

REPORT INFORMATION
  Report Type: Spontaneous
  Country: US (occurrence: US)
  Receive Date: 20161221
  Receipt Date: 20170227
  Transmission Date: 20170428
  Serious: No
  Sender: FDA-Public Use
  Company Number: US-LUNDBECK-DKLU2023321

PATIENT
  Age: 73 Year
  Sex: Female

DRUGS (3)
  1. NORTHERA [Suspect]
     Active Substance: DROXIDOPA
     Indication: PRODUCT USED FOR UNKNOWN INDICATION
     Dosage: SCHEDULE B (TITRATION COMPLETE)
     Route: 065
     Dates: start: 20161125
  2. NORTHERA [Suspect]
     Active Substance: DROXIDOPA
     Route: 065
  3. NORTHERA [Suspect]
     Active Substance: DROXIDOPA
     Route: 065

REACTIONS (10)
  - Malaise [Unknown]
  - Fatigue [Recovering/Resolving]
  - Drug dose omission [Unknown]
  - Asthenia [Not Recovered/Not Resolved]
  - Constipation [Recovering/Resolving]
  - Abdominal pain lower [Recovering/Resolving]
  - Abdominal discomfort [Not Recovered/Not Resolved]
  - Headache [Recovering/Resolving]
  - Disturbance in attention [Unknown]
  - Nausea [Recovering/Resolving]

NARRATIVE: CASE EVENT DATE: 20161128
